FAERS Safety Report 6599156-4 (Version None)
Quarter: 2010Q1

REPORT INFORMATION
  Report Type: 
  Country: None (occurrence: None)
  Receive Date: 20100217
  Receipt Date: 20100208
  Transmission Date: 20100710
  Serious: Yes (Hospitalization)
  Sender: FDA-Public Use
  Company Number: COM10-0247

PATIENT
  Age: 57 Year
  Sex: Female

DRUGS (3)
  1. PREDNISONE [Suspect]
     Indication: ASTHMA
     Dosage: 10 MG, 1 X DAY, ORAL AND WAS INCREASED UPON HOSPITAL RELEASE TO 10 MG, 4 X DAY, ORAL
     Route: 048
  2. LANTUS [Suspect]
     Indication: TYPE 2 DIABETES MELLITUS
     Dosage: 60 UNITS (S); DAILY; SUBCUTANEOUS
     Route: 058
     Dates: start: 20070101
  3. CIPROFLOXACIN HYDROCHLORIDE [Suspect]

REACTIONS (3)
  - ASTHMA [None]
  - BLOOD GLUCOSE INCREASED [None]
  - DRUG INEFFECTIVE [None]
